FAERS Safety Report 6301212-2 (Version None)
Quarter: 2009Q3

REPORT INFORMATION
  Report Type: 
  Country: None (occurrence: None)
  Receive Date: 20090807
  Receipt Date: 20090730
  Transmission Date: 20100115
  Serious: Yes (Hospitalization)
  Sender: FDA-Public Use
  Company Number: US-ASTRAZENECA-2009SE06343

PATIENT
  Age: 77 Year
  Sex: Male
  Weight: 99.8 kg

DRUGS (6)
  1. CRESTOR [Suspect]
     Route: 048
  2. TOPROL-XL [Concomitant]
  3. PROSCAR [Concomitant]
  4. FLOMAX [Concomitant]
  5. TYLENOL (CAPLET) [Concomitant]
  6. ALTACE [Concomitant]

REACTIONS (2)
  - MUSCLE RUPTURE [None]
  - MYALGIA [None]
